FAERS Safety Report 8614471-8 (Version None)
Quarter: 2012Q3

REPORT INFORMATION
  Report Type: 
  Country: None (occurrence: None)
  Receive Date: 20120823
  Receipt Date: 20120815
  Transmission Date: 20120928
  Serious: Yes (Hospitalization, Other)
  Sender: FDA-Public Use
  Company Number: PHHY2012CA062858

PATIENT
  Sex: Female

DRUGS (3)
  1. SANDOSTATIN LAR [Suspect]
     Indication: PANCREATIC NEUROENDOCRINE TUMOUR METASTATIC
     Dosage: 30 MG, ONCE A MONTH
     Route: 030
     Dates: start: 20100728
  2. FLUID [Concomitant]
  3. RED BLOOD CELLS [Concomitant]

REACTIONS (11)
  - NEOPLASM PROGRESSION [None]
  - DECREASED APPETITE [None]
  - OEDEMA PERIPHERAL [None]
  - DEHYDRATION [None]
  - DIARRHOEA [None]
  - CLOSTRIDIAL INFECTION [None]
  - TOOTH ABSCESS [None]
  - ABDOMINAL RIGIDITY [None]
  - ASTHENIA [None]
  - ABDOMINAL DISTENSION [None]
  - THIRST [None]
